FAERS Safety Report 13879926 (Version 1)
Quarter: 2017Q3

REPORT INFORMATION
  Report Type: Report from Study
  Country: None (occurrence: US)
  Receive Date: 20170818
  Receipt Date: 20170818
  Transmission Date: 20171127
  Serious: Yes (Hospitalization, Other)
  Sender: FDA-Public Use
  Company Number: US-ABBVIE-12P-163-0974174-00

PATIENT
  Sex: Female

DRUGS (5)
  1. TRAZODONE [Concomitant]
     Active Substance: TRAZODONE HYDROCHLORIDE
     Indication: INSOMNIA
  2. HUMIRA [Suspect]
     Active Substance: ADALIMUMAB
     Indication: RHEUMATOID ARTHRITIS
     Route: 058
     Dates: end: 2012
  3. RITALIN [Concomitant]
     Active Substance: METHYLPHENIDATE HYDROCHLORIDE
     Indication: PRODUCT USED FOR UNKNOWN INDICATION
     Dosage: 20MG EVERY MORNING
  4. RESTORIL [Concomitant]
     Active Substance: TEMAZEPAM
     Indication: INSOMNIA
     Dosage: 30MG EVERY NIGHT
  5. CELEBREX [Concomitant]
     Active Substance: CELECOXIB
     Indication: FIBROMYALGIA
     Dosage: 100MG DAILY

REACTIONS (10)
  - Dizziness [Unknown]
  - Body height decreased [Unknown]
  - Headache [Unknown]
  - Blindness unilateral [Unknown]
  - Ankylosing spondylitis [Recovering/Resolving]
  - Herpes zoster [Recovering/Resolving]
  - Fatigue [Recovering/Resolving]
  - Basal cell carcinoma [Unknown]
  - Thyroid hormones decreased [Recovering/Resolving]
  - Blood cholesterol increased [Unknown]

NARRATIVE: CASE EVENT DATE: 2011
